FAERS Safety Report 9419266 (Version 1)
Quarter: 2013Q3

REPORT INFORMATION
  Report Type: Spontaneous
  Country: US (occurrence: US)
  Receive Date: 20130725
  Receipt Date: 20130725
  Transmission Date: 20140515
  Serious: No
  Sender: FDA-Public Use
  Company Number: US-GLAXOSMITHKLINE-A0994192A

PATIENT
  Age: 74 Year
  Sex: Female

DRUGS (4)
  1. LAMICTAL XR [Suspect]
     Indication: CONVULSION
     Dosage: 100MG TWICE PER DAY
     Route: 048
     Dates: start: 2005
  2. ZIAC [Concomitant]
  3. CITALOPRAM [Concomitant]
  4. SIMVASTATIN [Concomitant]

REACTIONS (5)
  - Hypersomnia [Not Recovered/Not Resolved]
  - Asthenia [Unknown]
  - Lethargy [Unknown]
  - Mood altered [Unknown]
  - Inappropriate schedule of drug administration [Unknown]
